FAERS Safety Report 15170381 (Version 2)
Quarter: 2018Q3

REPORT INFORMATION
  Report Type: Spontaneous
  Country: FR (occurrence: FR)
  Receive Date: 20180720
  Receipt Date: 20180920
  Transmission Date: 20181010
  Serious: Yes (Life-Threatening, Other)
  Sender: FDA-Public Use
  Company Number: FR-SAKK-2018SA193948AA

PATIENT
  Age: 49 Year
  Sex: Female
  Weight: 70 kg

DRUGS (6)
  1. KARDEGIC [Suspect]
     Active Substance: ASPIRIN DL-LYSINE
     Indication: ACUTE CORONARY SYNDROME
     Dosage: 75 MG, QD
     Route: 048
     Dates: start: 20180613
  2. ATORVASTATIN [Suspect]
     Active Substance: ATORVASTATIN
     Indication: ACUTE CORONARY SYNDROME
     Dosage: 40 MG LE SOIR
     Route: 048
     Dates: start: 20180613
  3. BRILIQUE [Suspect]
     Active Substance: TICAGRELOR
     Indication: ACUTE CORONARY SYNDROME
     Dosage: 180 MG, QD
     Route: 048
     Dates: start: 20180613, end: 20180614
  4. LOVENOX [Suspect]
     Active Substance: ENOXAPARIN SODIUM
     Indication: ACUTE CORONARY SYNDROME
     Dosage: 14000 IU, QD
     Route: 058
     Dates: start: 20180613
  5. LOVENOX [Suspect]
     Active Substance: ENOXAPARIN SODIUM
     Dosage: 7000 IU, QD
     Route: 058
     Dates: start: 20180613
  6. ATENOLOL. [Suspect]
     Active Substance: ATENOLOL
     Indication: ACUTE CORONARY SYNDROME
     Dosage: 25 MG, QD
     Route: 048
     Dates: start: 20180613, end: 20180614

REACTIONS (2)
  - Bundle branch block left [Recovered/Resolved]
  - Atrioventricular block complete [Recovered/Resolved]

NARRATIVE: CASE EVENT DATE: 20180614
